FAERS Safety Report 6530183-9 (Version None)
Quarter: 2010Q1

REPORT INFORMATION
  Report Type: 
  Country: None (occurrence: None)
  Receive Date: 20100107
  Receipt Date: 20100105
  Transmission Date: 20100710
  Serious: Yes (Other)
  Sender: FDA-Public Use
  Company Number: JP-EISAI INC.-E2020-05110-CLI-JP

PATIENT
  Sex: Male
  Weight: 57 kg

DRUGS (7)
  1. ARICEPT [Suspect]
     Indication: DEMENTIA WITH LEWY BODIES
     Route: 048
     Dates: start: 20090216, end: 20090302
  2. ARICEPT [Suspect]
     Route: 048
     Dates: start: 20090303, end: 20090731
  3. FLIVAS [Suspect]
     Route: 048
     Dates: start: 20090324
  4. MEVALOTIN [Suspect]
     Route: 048
     Dates: start: 20090212
  5. OLMETEC [Suspect]
     Indication: HYPERTENSION
     Route: 048
     Dates: start: 20080726
  6. NORVASC [Suspect]
     Indication: HYPERTENSION
     Route: 048
     Dates: start: 20070802
  7. ELSAMET [Suspect]
     Dosage: 1 DF
     Route: 048
     Dates: start: 20090810

REACTIONS (1)
  - PROSTATE CANCER [None]
